FAERS Safety Report 9143374 (Version 1)
Quarter: 2013Q1

REPORT INFORMATION
  Report Type: Spontaneous
  Country: US (occurrence: US)
  Receive Date: 20130306
  Receipt Date: 20130306
  Transmission Date: 20140127
  Serious: No
  Sender: FDA-Public Use
  Company Number: US-ENDO PHARMACEUTICALS INC.-OPER20120347

PATIENT
  Sex: Female

DRUGS (3)
  1. OPANA ER 20MG [Suspect]
     Indication: FIBROMYALGIA
     Route: 048
     Dates: start: 20120308, end: 20120308
  2. OPANA ER 20MG [Suspect]
     Indication: BACK PAIN
  3. OPANA ER 20MG [Suspect]
     Indication: INTERVERTEBRAL DISC DEGENERATION

REACTIONS (6)
  - Tremor [Unknown]
  - Feeling cold [Unknown]
  - Burning sensation [Unknown]
  - Hyperhidrosis [Unknown]
  - Vomiting [Unknown]
  - Dyspepsia [Unknown]
